FAERS Safety Report 7379609-1 (Version None)
Quarter: 2011Q1

REPORT INFORMATION
  Report Type: 
  Country: None (occurrence: None)
  Receive Date: 20110318
  Receipt Date: 20110309
  Transmission Date: 20110831
  Serious: Yes (Hospitalization, Disabling, Other)
  Sender: FDA-Public Use
  Company Number: 2010SP025276

PATIENT
  Age: 44 Year
  Sex: Female
  Weight: 61.2356 kg

DRUGS (5)
  1. ZYRTEC [Concomitant]
  2. NUVARING [Suspect]
     Indication: CONTRACEPTION
     Dates: start: 20061001, end: 20080430
  3. NUVARING [Suspect]
     Indication: MENSTRUATION IRREGULAR
     Dates: start: 20061001, end: 20080430
  4. SINGULAIR [Concomitant]
  5. PAXIL [Concomitant]

REACTIONS (14)
  - CARDIOMEGALY [None]
  - PULMONARY EMBOLISM [None]
  - STRESS FRACTURE [None]
  - AFFECTIVE DISORDER [None]
  - ATELECTASIS [None]
  - FEMUR FRACTURE [None]
  - HYPERTENSION [None]
  - EJECTION FRACTION DECREASED [None]
  - TACHYCARDIA [None]
  - PLEURISY [None]
  - UTERINE LEIOMYOMA [None]
  - POST-TRAUMATIC STRESS DISORDER [None]
  - OVARIAN CYST [None]
  - DIASTOLIC DYSFUNCTION [None]
